FAERS Safety Report 18321564 (Version 1)
Quarter: 2020Q3

REPORT INFORMATION
  Report Type: Spontaneous
  Country: QA (occurrence: QA)
  Receive Date: 20200929
  Receipt Date: 20200929
  Transmission Date: 20201103
  Serious: Yes (Hospitalization, Other)
  Sender: FDA-Public Use
  Company Number: QA-LUPIN PHARMACEUTICALS INC.-2020-06526

PATIENT
  Age: 33 Year
  Sex: Male

DRUGS (8)
  1. PROCYCLIDINE [Suspect]
     Active Substance: PROCYCLIDINE
     Indication: BIPOLAR DISORDER
     Dosage: 5 MILLIGRAM, BID
     Route: 065
  2. TRENBOLONE ACETATE [Suspect]
     Active Substance: TRENBOLONE ACETATE
     Indication: SUBSTANCE USE
     Dosage: UNK (ONE COURSE AS 100 TO 200MG DAILY FOR 90 DAYS)
     Route: 065
  3. OLANZAPINE. [Suspect]
     Active Substance: OLANZAPINE
     Indication: BIPOLAR DISORDER
     Dosage: 20 MILLIGRAM, QD
     Route: 065
  4. METANDIENONE [Suspect]
     Active Substance: METHANDROSTENOLONE
     Indication: SUBSTANCE USE
     Dosage: 20 MILLIGRAM, QD
     Route: 065
  5. TESTOSTERONE. [Suspect]
     Active Substance: TESTOSTERONE
     Indication: SUBSTANCE USE
     Dosage: UNK (ONE COURSE AS 100 TO 200MG DAILY FOR 90 DAYS)
     Route: 042
  6. HALOPERIDOL. [Suspect]
     Active Substance: HALOPERIDOL
     Indication: BIPOLAR DISORDER
     Dosage: 5 MILLIGRAM, BID
     Route: 065
  7. SODIUM VALPROATE [Suspect]
     Active Substance: VALPROATE SODIUM
     Indication: BIPOLAR DISORDER
     Dosage: 2 GRAM, QD
     Route: 065
  8. TADALAFIL. [Concomitant]
     Active Substance: TADALAFIL
     Indication: ERECTILE DYSFUNCTION
     Route: 065

REACTIONS (9)
  - Logorrhoea [Recovering/Resolving]
  - Aggression [Recovering/Resolving]
  - Weight increased [Unknown]
  - Sedation [Unknown]
  - Hostility [Recovering/Resolving]
  - Loss of personal independence in daily activities [Recovering/Resolving]
  - Delirium [Recovering/Resolving]
  - Flight of ideas [Recovering/Resolving]
  - Testicular atrophy [Unknown]
